FAERS Safety Report 4700107-5 (Version None)
Quarter: 2005Q2

REPORT INFORMATION
  Report Type: 
  Country: None (occurrence: None)
  Receive Date: 20050627
  Receipt Date: 20050405
  Transmission Date: 20051028
  Serious: Yes (Death, Hospitalization)
  Sender: FDA-Public Use
  Company Number: HQWYE872208APR05

PATIENT
  Age: 83 Year
  Sex: Female

DRUGS (4)
  1. ENBREL [Suspect]
     Indication: RHEUMATOID ARTHRITIS
     Dosage: UNKNOWN
     Route: 058
     Dates: start: 20041101, end: 20050130
  2. BEXTRA [Concomitant]
  3. SPIRICORT [Concomitant]
  4. INSULIN MIXTARD [Concomitant]

REACTIONS (5)
  - CALCULUS URETERIC [None]
  - CALCULUS URINARY [None]
  - NAUSEA [None]
  - UROSEPSIS [None]
  - VOMITING [None]
